FAERS Safety Report 4296067-4 (Version None)
Quarter: 2004Q1

REPORT INFORMATION
  Report Type: 
  Country: None (occurrence: None)
  Receive Date: 20040212
  Receipt Date: 20040130
  Transmission Date: 20041129
  Serious: Yes (Hospitalization)
  Sender: FDA-Public Use
  Company Number: 2004AP00565

PATIENT
  Age: 70 Year
  Sex: Male

DRUGS (1)
  1. PLENDIL [Suspect]
     Indication: HYPERTENSION
     Dosage: 1 DF BID PO
     Route: 048
     Dates: start: 19990101

REACTIONS (1)
  - GASTRIC CANCER [None]
